FAERS Safety Report 21507770 (Version 5)
Quarter: 2023Q1

REPORT INFORMATION
  Report Type: Spontaneous
  Country: US (occurrence: US)
  Receive Date: 20221026
  Receipt Date: 20230321
  Transmission Date: 20230418
  Serious: No
  Sender: FDA-Public Use
  Company Number: US-PFIZER INC-PV202200090130

PATIENT
  Age: 84 Year
  Sex: Female
  Weight: 73.48 kg

DRUGS (4)
  1. IBRANCE [Suspect]
     Active Substance: PALBOCICLIB
     Indication: Breast cancer metastatic
     Dosage: 125 MG
  2. IBRANCE [Suspect]
     Active Substance: PALBOCICLIB
     Dosage: 100 MG, 18 PILLS
     Dates: end: 20220728
  3. IBRANCE [Suspect]
     Active Substance: PALBOCICLIB
     Dosage: 100MG TABLET ONCE A DAY FOR 18 DAYS
  4. FASLODEX [Concomitant]
     Active Substance: FULVESTRANT
     Indication: Neoplasm malignant
     Dosage: UNK, MONTHLY

REACTIONS (6)
  - Bronchitis [Unknown]
  - Malaise [Unknown]
  - Diarrhoea [Recovered/Resolved]
  - Weight decreased [Recovered/Resolved]
  - Neutrophil count decreased [Unknown]
  - Platelet count decreased [Unknown]
